FAERS Safety Report 5746530-1 (Version None)
Quarter: 2008Q2

REPORT INFORMATION
  Report Type: 
  Country: None (occurrence: None)
  Receive Date: 20080522
  Receipt Date: 20070831
  Transmission Date: 20081010
  Serious: No
  Sender: FDA-Public Use
  Company Number: US-BRISTOL-MYERS SQUIBB COMPANY-13895289

PATIENT
  Age: 62 Year
  Sex: Female

DRUGS (7)
  1. CYCLOPHOSPHAMIDE [Suspect]
     Indication: BREAST CANCER
  2. DOXORUBICIN HCL [Suspect]
     Indication: BREAST CANCER
  3. ALOXI [Suspect]
     Indication: BREAST CANCER
     Route: 042
     Dates: start: 20070828
  4. ALBUTEROL [Concomitant]
  5. CHANTIX [Concomitant]
  6. TYLENOL [Concomitant]
  7. MULTI-VITAMIN [Concomitant]

REACTIONS (2)
  - NAUSEA [None]
  - VOMITING [None]
